FAERS Safety Report 24714535 (Version 1)
Quarter: 2024Q4

REPORT INFORMATION
  Report Type: Report from Study
  Country: US (occurrence: US)
  Receive Date: 20241209
  Receipt Date: 20241209
  Transmission Date: 20250115
  Serious: Yes (Hospitalization, Other)
  Sender: GLAXOSMITHKLINE
  Company Number: US-GSK-US2019GSK067787

PATIENT

DRUGS (5)
  1. MEPOLIZUMAB [Suspect]
     Active Substance: MEPOLIZUMAB
     Indication: Hypereosinophilic syndrome
     Dosage: UNK
     Route: 042
     Dates: start: 20181009
  2. CLOFAZIMINE [Concomitant]
     Active Substance: CLOFAZIMINE
     Indication: Mycobacterial infection
     Dosage: 100 MG, QD
     Route: 048
     Dates: start: 20181011
  3. MEROPENEM [Concomitant]
     Active Substance: MEROPENEM
     Indication: Mycobacterial infection
     Dosage: 1 G, BID
     Route: 048
     Dates: start: 20181008
  4. TIGECYCLINE [Concomitant]
     Active Substance: TIGECYCLINE
     Indication: Mycobacterial infection
     Dosage: 50 MG, Q 24 HRS
     Route: 042
     Dates: start: 20181213
  5. TEDIZOLID [Concomitant]
     Active Substance: TEDIZOLID
     Indication: Mycobacterial infection
     Dosage: 200 MG, DAILY
     Route: 048
     Dates: start: 20180823

REACTIONS (3)
  - Mycobacterium abscessus infection [Recovered/Resolved with Sequelae]
  - Ulcer [Recovered/Resolved with Sequelae]
  - Condition aggravated [Recovered/Resolved with Sequelae]

NARRATIVE: CASE EVENT DATE: 20190410
